FAERS Safety Report 8806821 (Version 2)
Quarter: 2012Q4

REPORT INFORMATION
  Report Type: 
  Country: US (occurrence: US)
  Receive Date: 20120925
  Receipt Date: 20121127
  Transmission Date: 20130627
  Serious: Yes (Other)
  Sender: FDA-Public Use
  Company Number: US-ELI_LILLY_AND_COMPANY-US201209006071

PATIENT
  Age: 47 Year
  Sex: Male
  Weight: 90 kg

DRUGS (10)
  1. EFFIENT [Suspect]
     Indication: STENT PLACEMENT
     Dosage: 10 mg, qd
     Route: 048
     Dates: start: 20110125
  2. METFORMIN [Concomitant]
  3. LISINOPRIL [Concomitant]
  4. LOVASTATIN [Concomitant]
  5. METOPROLOL [Concomitant]
  6. ASPIRIN [Concomitant]
  7. DEXLANSOPRAZOLE [Concomitant]
  8. ADVAIR [Concomitant]
  9. FLONASE [Concomitant]
  10. HYDROCODONE [Concomitant]

REACTIONS (2)
  - Myocardial infarction [Unknown]
  - Back pain [Not Recovered/Not Resolved]
